FAERS Safety Report 8851273 (Version 2)
Quarter: 2012Q4

REPORT INFORMATION
  Report Type: 
  Country: JP (occurrence: JP)
  Receive Date: 20121019
  Receipt Date: 20121126
  Transmission Date: 20130627
  Serious: Yes (Death, Hospitalization)
  Sender: FDA-Public Use
  Company Number: PHHY2012JP092282

PATIENT
  Sex: Male

DRUGS (2)
  1. TACROLIMUS [Suspect]
     Indication: MYASTHENIA GRAVIS
     Dosage: 2 mg, UNK
  2. PREDNISOLONE ACETATE SANDOZ [Suspect]
     Indication: MYASTHENIA GRAVIS
     Dosage: 25.5 mg, UNK
     Route: 048

REACTIONS (11)
  - Cardio-respiratory arrest [Fatal]
  - Cellulitis [Recovered/Resolved]
  - Cryptococcosis [Recovering/Resolving]
  - Oedema peripheral [Recovering/Resolving]
  - Erythema [Recovering/Resolving]
  - Pigmentation disorder [Recovering/Resolving]
  - Skin necrosis [Recovering/Resolving]
  - Skin erosion [Recovering/Resolving]
  - Skin ulcer [Recovering/Resolving]
  - Skin haemorrhage [Recovering/Resolving]
  - Lymphangitis [Recovering/Resolving]
